FAERS Safety Report 15896841 (Version 2)
Quarter: 2019Q1

REPORT INFORMATION
  Report Type: Spontaneous
  Country: US (occurrence: US)
  Receive Date: 20190131
  Receipt Date: 20190226
  Transmission Date: 20190417
  Serious: Yes (Hospitalization, Other)
  Sender: FDA-Public Use
  Company Number: US-AKORN PHARMACEUTICALS-2019AKN00133

PATIENT
  Age: 15 Year
  Sex: Male
  Weight: 86.17 kg

DRUGS (1)
  1. MYORISAN [Suspect]
     Active Substance: ISOTRETINOIN
     Indication: ACNE
     Dosage: 2 CAPSULES, 1X/DAY
     Route: 048
     Dates: start: 201803, end: 201808

REACTIONS (10)
  - Pruritus [Not Recovered/Not Resolved]
  - Cheilitis [Unknown]
  - Blood triglycerides increased [Recovered/Resolved]
  - Suicidal ideation [Not Recovered/Not Resolved]
  - Suicide attempt [Not Recovered/Not Resolved]
  - Bipolar I disorder [Not Recovered/Not Resolved]
  - Intentional overdose [Recovered/Resolved]
  - Hallucination, auditory [Not Recovered/Not Resolved]
  - Blood test abnormal [Not Recovered/Not Resolved]
  - Rash [Not Recovered/Not Resolved]

NARRATIVE: CASE EVENT DATE: 20180518
